FAERS Safety Report 12198981 (Version 1)
Quarter: 2016Q1

REPORT INFORMATION
  Report Type: Spontaneous
  Country: US (occurrence: US)
  Receive Date: 20160322
  Receipt Date: 20160322
  Transmission Date: 20160526
  Serious: Yes (Hospitalization, Other)
  Sender: FDA-Public Use
  Company Number: US-CELGENE-USA-2016032235

PATIENT
  Age: 62 Year
  Sex: Male

DRUGS (1)
  1. AZACITIDINE INJECTABLE [Suspect]
     Active Substance: AZACITIDINE
     Indication: ACUTE MYELOID LEUKAEMIA
     Dosage: 75 MILLIGRAM/SQ. METER
     Route: 041

REACTIONS (5)
  - Pericarditis [Unknown]
  - Pericardial effusion [Unknown]
  - Oedema peripheral [Unknown]
  - Rash [Unknown]
  - Ventricular dysfunction [Unknown]
